FAERS Safety Report 5469369-3 (Version None)
Quarter: 2007Q3

REPORT INFORMATION
  Report Type: 
  Country: None (occurrence: None)
  Receive Date: 20070927
  Receipt Date: 20070918
  Transmission Date: 20080115
  Serious: Yes (Disabling)
  Sender: FDA-Public Use
  Company Number: BR-ELI_LILLY_AND_COMPANY-BR200709003898

PATIENT
  Age: 88 Year
  Sex: Female
  Weight: 70 kg

DRUGS (4)
  1. FORTEO [Suspect]
     Indication: OSTEOPOROSIS
     Dosage: UNK, DAILY (1/D)
     Route: 058
     Dates: start: 20060619
  2. QUESTRAN LIGHT [Concomitant]
     Indication: DYSENTERY
     Dosage: UNK, EACH MORNING
     Route: 048
  3. ENDOFOLIN [Concomitant]
     Indication: SICKLE CELL ANAEMIA
     Dosage: UNK, DAILY (1/D)
     Route: 048
  4. FENOBARBITAL [Concomitant]
     Indication: EPILEPSY
     Dosage: UNK, EACH EVENING
     Route: 048

REACTIONS (3)
  - ARTHRALGIA [None]
  - GAIT DISTURBANCE [None]
  - PAIN IN EXTREMITY [None]
